FAERS Safety Report 23286417 (Version 1)
Quarter: 2023Q4

REPORT INFORMATION
  Report Type: Spontaneous
  Country: ES (occurrence: ES)
  Receive Date: 20231212
  Receipt Date: 20231212
  Transmission Date: 20240109
  Serious: Yes (Other)
  Sender: FDA-Public Use
  Company Number: ES-BRACCO-2023ES06644

PATIENT
  Age: 52 Year
  Sex: Female

DRUGS (3)
  1. SULFUR HEXAFLUORIDE [Suspect]
     Active Substance: SULFUR HEXAFLUORIDE
  2. SULFUR HEXAFLUORIDE [Suspect]
     Active Substance: SULFUR HEXAFLUORIDE
  3. SULFUR HEXAFLUORIDE [Suspect]
     Active Substance: SULFUR HEXAFLUORIDE

REACTIONS (4)
  - Kounis syndrome [Unknown]
  - Chest pain [Unknown]
  - Hypotension [Unknown]
  - Electrocardiogram abnormal [Unknown]
